FAERS Safety Report 7076494-2 (Version None)
Quarter: 2010Q4

REPORT INFORMATION
  Report Type: 
  Country: None (occurrence: None)
  Receive Date: 20101101
  Receipt Date: 20101025
  Transmission Date: 20110411
  Serious: Yes (Other)
  Sender: FDA-Public Use
  Company Number: US-B.I. PHARMACEUTICALS,INC./RIDGEFIELD-2010-BP-11966BP

PATIENT
  Sex: Female

DRUGS (6)
  1. SPIRIVA [Suspect]
     Indication: EMPHYSEMA
     Dosage: 18 MCG
     Route: 055
     Dates: start: 20070101
  2. PRILOSEC [Concomitant]
     Indication: ABDOMINAL DISCOMFORT
  3. OXYBUTYNIN [Concomitant]
     Indication: BLADDER DISORDER
  4. CALCIUM [Concomitant]
     Indication: PROPHYLAXIS
  5. VITAMIN D [Concomitant]
     Indication: PROPHYLAXIS
  6. ANTIDEPRESSANT [Concomitant]
     Indication: DEPRESSION

REACTIONS (1)
  - LUNG NEOPLASM MALIGNANT [None]
